FAERS Safety Report 8577442-6 (Version None)
Quarter: 2012Q3

REPORT INFORMATION
  Report Type: 
  Country: None (occurrence: None)
  Receive Date: 20120807
  Receipt Date: 20120801
  Transmission Date: 20120928
  Serious: Yes (Other)
  Sender: FDA-Public Use
  Company Number: PHHY2012ES066441

PATIENT
  Age: 47 Year
  Sex: Female

DRUGS (3)
  1. OMEPRAZOLE [Concomitant]
     Indication: PEPTIC ULCER
  2. AMOXICILLIN [Concomitant]
     Indication: PEPTIC ULCER
     Dosage: UNK
  3. CLARITHROMYCIN [Suspect]
     Indication: PEPTIC ULCER

REACTIONS (10)
  - MOOD ALTERED [None]
  - PSYCHOMOTOR HYPERACTIVITY [None]
  - THINKING ABNORMAL [None]
  - ENERGY INCREASED [None]
  - MANIA [None]
  - IRRITABILITY [None]
  - PRESSURE OF SPEECH [None]
  - INSOMNIA [None]
  - BIPOLAR I DISORDER [None]
  - DELUSION OF GRANDEUR [None]
